FAERS Safety Report 18672896 (Version 1)
Quarter: 2020Q4

REPORT INFORMATION
  Report Type: Other
  Country: AR (occurrence: AR)
  Receive Date: 20201229
  Receipt Date: 20201229
  Transmission Date: 20210114
  Serious: Yes (Other)
  Sender: FDA-Public Use
  Company Number: AR-ROCHE-2113314

PATIENT
  Sex: Female

DRUGS (2)
  1. XOLAIR [Suspect]
     Active Substance: OMALIZUMAB
     Indication: ASTHMA
     Route: 065
     Dates: start: 20171030, end: 201802
  2. XOLAIR [Suspect]
     Active Substance: OMALIZUMAB
     Dosage: 600 MG
     Route: 065
     Dates: end: 201802

REACTIONS (17)
  - Fear [Not Recovered/Not Resolved]
  - Chronic obstructive pulmonary disease [Unknown]
  - Calcium deficiency [Not Recovered/Not Resolved]
  - Nervousness [Not Recovered/Not Resolved]
  - Back pain [Recovering/Resolving]
  - Deafness [Unknown]
  - Hypoacusis [Not Recovered/Not Resolved]
  - Depressed mood [Recovering/Resolving]
  - Agitation [Not Recovered/Not Resolved]
  - Fracture [Not Recovered/Not Resolved]
  - Fatigue [Recovering/Resolving]
  - Muscle atrophy [Not Recovered/Not Resolved]
  - Osteopenia [Not Recovered/Not Resolved]
  - Incoherent [Unknown]
  - Pulmonary mass [Not Recovered/Not Resolved]
  - Dyspnoea [Not Recovered/Not Resolved]
  - Malaise [Recovering/Resolving]
